FAERS Safety Report 14373129 (Version 1)
Quarter: 2018Q1

REPORT INFORMATION
  Report Type: Spontaneous
  Country: ZA (occurrence: ZA)
  Receive Date: 20180110
  Receipt Date: 20180110
  Transmission Date: 20180509
  Serious: Yes (Death)
  Sender: FDA-Public Use
  Company Number: ZA-FRESENIUS KABI-FK201800342

PATIENT
  Sex: Female

DRUGS (2)
  1. FENTANYL (MANUFACTURER UNKNOWN) [Suspect]
     Active Substance: FENTANYL
     Indication: EPIDURAL ANALGESIA
     Route: 042
  2. BUPIVACAINE (MANUFACTURER UNKNOWN) [Suspect]
     Active Substance: BUPIVACAINE
     Indication: EPIDURAL ANALGESIA
     Route: 042

REACTIONS (2)
  - Medication error [Fatal]
  - Incorrect route of drug administration [Fatal]
